FAERS Safety Report 13206418 (Version 1)
Quarter: 2017Q1

REPORT INFORMATION
  Report Type: Spontaneous
  Country: US (occurrence: US)
  Receive Date: 20170208
  Receipt Date: 20170208
  Transmission Date: 20170428
  Serious: No
  Sender: FDA-Public Use
  Company Number: US-AMGEN-USASP2016135635

PATIENT

DRUGS (5)
  1. AVASTIN [Concomitant]
     Active Substance: BEVACIZUMAB
     Dosage: UNK
  2. FOLINIC ACID [Concomitant]
     Active Substance: LEUCOVORIN
     Dosage: UNK
  3. IRINOTECAN [Concomitant]
     Active Substance: IRINOTECAN
     Dosage: UNK
  4. NEULASTA [Suspect]
     Active Substance: PEGFILGRASTIM
     Indication: PRODUCT USED FOR UNKNOWN INDICATION
     Dosage: UNK
     Route: 065
  5. 5 FU [Concomitant]
     Active Substance: FLUOROURACIL
     Dosage: UNK

REACTIONS (12)
  - Arthralgia [Unknown]
  - Nasopharyngitis [Unknown]
  - Feeling abnormal [Unknown]
  - Neuropathy peripheral [Unknown]
  - Fatigue [Unknown]
  - Nausea [Unknown]
  - Weight decreased [Unknown]
  - Malaise [Unknown]
  - Alopecia [Unknown]
  - Rash [Unknown]
  - Hot flush [Unknown]
  - Bone pain [Unknown]
